FAERS Safety Report 16711876 (Version 2)
Quarter: 2019Q4

REPORT INFORMATION
  Report Type: Spontaneous
  Country: DE (occurrence: DE)
  Receive Date: 20190816
  Receipt Date: 20191009
  Transmission Date: 20200122
  Serious: Yes (Congenital Anomaly, Other)
  Sender: FDA-Public Use
  Company Number: DE-UCBSA-2019033954

PATIENT
  Age: 0 Year
  Sex: Male
  Weight: 3.17 kg

DRUGS (3)
  1. VIMPAT [Suspect]
     Active Substance: LACOSAMIDE
     Indication: POST-TRAUMATIC EPILEPSY
     Dosage: 1000 [MG/D ] 2 SEPARATED DOSES
     Route: 064
     Dates: start: 201806, end: 20190318
  2. FOLSAEURE [Concomitant]
     Active Substance: FOLIC ACID
     Indication: PROPHYLAXIS OF NEURAL TUBE DEFECT
     Route: 064
  3. KEPPRA [Suspect]
     Active Substance: LEVETIRACETAM
     Indication: POST-TRAUMATIC EPILEPSY
     Dosage: 1000 [MG/D ] 2 SEPARATED DOSES
     Route: 064
     Dates: start: 201806, end: 20190318

REACTIONS (4)
  - Feeling jittery [Recovered/Resolved]
  - Maternal exposure before pregnancy [Unknown]
  - Atrial septal defect [Not Recovered/Not Resolved]
  - Neonatal hypocalcaemia [Recovering/Resolving]

NARRATIVE: CASE EVENT DATE: 201806
